FAERS Safety Report 20168165 (Version 1)
Quarter: 2021Q4

REPORT INFORMATION
  Report Type: Spontaneous
  Country: CA (occurrence: CA)
  Receive Date: 20211210
  Receipt Date: 20211210
  Transmission Date: 20220303
  Serious: Yes (Hospitalization)
  Sender: FDA-Public Use
  Company Number: CA-NEBO-PC007730

PATIENT
  Age: 34 Year
  Sex: Female
  Weight: 158 kg

DRUGS (5)
  1. MONOFERRIC [Suspect]
     Active Substance: FERRIC DERISOMALTOSE
     Indication: Iron deficiency anaemia
  2. HUMALOG [Concomitant]
     Active Substance: INSULIN LISPRO
  3. ISOPHANE INSULIN [Concomitant]
     Active Substance: INSULIN NOS
  4. LABETALOL [Concomitant]
     Active Substance: LABETALOL\LABETALOL HYDROCHLORIDE
  5. NIFEDIPINE [Concomitant]
     Active Substance: NIFEDIPINE

REACTIONS (8)
  - Infusion related reaction [Unknown]
  - Dyspnoea [Unknown]
  - Chest discomfort [Unknown]
  - Back pain [Unknown]
  - Discomfort [Unknown]
  - Feeling hot [Unknown]
  - Drug intolerance [Unknown]
  - Loss of personal independence in daily activities [Unknown]
